FAERS Safety Report 18099208 (Version 2)
Quarter: 2021Q3

REPORT INFORMATION
  Report Type: Spontaneous
  Country: US (occurrence: US)
  Receive Date: 20200731
  Receipt Date: 20210819
  Transmission Date: 20211014
  Serious: Yes (Death, Hospitalization, Other)
  Sender: FDA-Public Use
  Company Number: US-GILEAD-2020-0486888

PATIENT
  Age: 52 Year
  Sex: Male

DRUGS (1)
  1. ATRIPLA [Suspect]
     Active Substance: EFAVIRENZ\EMTRICITABINE\TENOFOVIR DISOPROXIL FUMARATE
     Indication: HIV INFECTION
     Dosage: UNK
     Route: 048
     Dates: start: 20100319, end: 20150121

REACTIONS (9)
  - Death [Fatal]
  - Acute kidney injury [Recovered/Resolved]
  - Renal failure [Unknown]
  - Bone density decreased [Not Recovered/Not Resolved]
  - Chronic kidney disease [Unknown]
  - Tooth loss [Recovered/Resolved]
  - Osteonecrosis [Not Recovered/Not Resolved]
  - Multiple fractures [Unknown]
  - Bone loss [Unknown]

NARRATIVE: CASE EVENT DATE: 2011
